FAERS Safety Report 25481850 (Version 1)
Quarter: 2025Q2

REPORT INFORMATION
  Report Type: Spontaneous
  Country: US (occurrence: US)
  Receive Date: 20250626
  Receipt Date: 20250626
  Transmission Date: 20250716
  Serious: No
  Sender: ITALFARMACO SPA
  Company Number: US-ITALFARMACO SPA-2179425

PATIENT
  Age: 15 Year
  Sex: Male
  Weight: 76.40 kg

DRUGS (14)
  1. DUVYZAT [Suspect]
     Active Substance: GIVINOSTAT
     Indication: Duchenne muscular dystrophy
     Dates: start: 20241209
  2. DULCOLAX [Concomitant]
  3. HEPARIN [Concomitant]
     Active Substance: HEPARIN SODIUM
  4. VILTEPSO [Concomitant]
     Active Substance: VILTOLARSEN
  5. SODIUM CHLORIDE [Concomitant]
     Active Substance: SODIUM CHLORIDE
  6. POLYETHYLENE GLYCOL 3350 AND ELECTROLYTES [Concomitant]
     Active Substance: POLYETHYLENE GLYCOL 3350\POTASSIUM CHLORIDE\SODIUM BICARBONATE\SODIUM CHLORIDE\SODIUM SULFATE
  7. VITAMINS [Concomitant]
     Active Substance: VITAMINS
  8. LISINOPRIL [Concomitant]
     Active Substance: LISINOPRIL
  9. LINZESS [Concomitant]
     Active Substance: LINACLOTIDE
  10. LACTULOSE [Concomitant]
     Active Substance: LACTULOSE
  11. SOLU-CORTEF [Concomitant]
     Active Substance: HYDROCORTISONE SODIUM SUCCINATE
  12. DEFLAZACORT [Concomitant]
     Active Substance: DEFLAZACORT
  13. VITAMIN D [Concomitant]
     Active Substance: VITAMIN D NOS
  14. ANTIACID [Concomitant]

REACTIONS (2)
  - Platelet count decreased [Unknown]
  - Blood triglycerides increased [Unknown]

NARRATIVE: CASE EVENT DATE: 20241223
